FAERS Safety Report 4524540-X (Version None)
Quarter: 2005Q1

REPORT INFORMATION
  Report Type: 
  Country: None (occurrence: None)
  Receive Date: 20041117
  Receipt Date: 20040604
  Transmission Date: 20050727
  Serious: Yes (Other)
  Sender: FDA-Public Use
  Company Number: US-JNJFOC-20040300691

PATIENT
  Age: 58 Year
  Sex: Female
  Weight: 99.3377 kg

DRUGS (7)
  1. LEVAQUIN [Suspect]
     Indication: DRUG USE FOR UNKNOWN INDICATION
     Dosage: ORAL
     Route: 048
     Dates: start: 20040227, end: 20040227
  2. SYNTHROID [Concomitant]
  3. LIPITOR [Concomitant]
  4. EVISTA [Concomitant]
  5. ATACAND [Concomitant]
  6. ESCITALOPRAM OXALATE [Concomitant]
  7. FLAX SEED (LINSEED OIL) [Concomitant]

REACTIONS (1)
  - HYPERSENSITIVITY [None]
